FAERS Safety Report 16148665 (Version 2)
Quarter: 2020Q1

REPORT INFORMATION
  Report Type: Spontaneous
  Country: DE (occurrence: DE)
  Receive Date: 20190402
  Receipt Date: 20200331
  Transmission Date: 20200409
  Serious: Yes (Other)
  Sender: FDA-Public Use
  Company Number: PHHY2019DE074815

PATIENT
  Age: 80 Year
  Sex: Female

DRUGS (1)
  1. FUROSEMID 40 - 1 A PHARMA [Suspect]
     Active Substance: FUROSEMIDE
     Indication: PRODUCT USED FOR UNKNOWN INDICATION
     Dosage: UNK
     Route: 065

REACTIONS (2)
  - Product physical issue [Unknown]
  - Blindness [Unknown]

NARRATIVE: CASE EVENT DATE: 2015
